FAERS Safety Report 25211432 (Version 3)
Quarter: 2025Q2

REPORT INFORMATION
  Report Type: Report from Study
  Country: ES (occurrence: ES)
  Receive Date: 20250417
  Receipt Date: 20250508
  Transmission Date: 20250716
  Serious: Yes (Other)
  Sender: ABBVIE
  Company Number: ES-ABBVIE-6040166

PATIENT
  Age: 71 Year
  Sex: Male

DRUGS (2)
  1. FOSCARBIDOPA\FOSLEVODOPA [Suspect]
     Active Substance: FOSCARBIDOPA\FOSLEVODOPA
     Indication: Parkinson^s disease
     Route: 058
     Dates: start: 20250106
  2. FOSCARBIDOPA\FOSLEVODOPA [Suspect]
     Active Substance: FOSCARBIDOPA\FOSLEVODOPA
     Route: 058
     Dates: start: 20241111, end: 20241211

REACTIONS (15)
  - Puncture site erythema [Not Recovered/Not Resolved]
  - Infusion site nodule [Recovered/Resolved]
  - Puncture site induration [Not Recovered/Not Resolved]
  - Puncture site pain [Not Recovered/Not Resolved]
  - Infusion site warmth [Not Recovered/Not Resolved]
  - Infusion site infection [Recovered/Resolved]
  - Administration site pain [Not Recovered/Not Resolved]
  - Administration site infection [Recovered/Resolved]
  - Infusion site nodule [Not Recovered/Not Resolved]
  - Needle issue [Unknown]
  - Pyrexia [Unknown]
  - Puncture site cellulitis [Unknown]
  - Infusion site warmth [Not Recovered/Not Resolved]
  - Puncture site erythema [Not Recovered/Not Resolved]
  - Administration site nodule [Not Recovered/Not Resolved]

NARRATIVE: CASE EVENT DATE: 20240101
